FAERS Safety Report 18917129 (Version 1)
Quarter: 2021Q1

REPORT INFORMATION
  Report Type: Spontaneous
  Country: GB (occurrence: GB)
  Receive Date: 20210219
  Receipt Date: 20210219
  Transmission Date: 20210420
  Serious: Yes (Other)
  Sender: FDA-Public Use
  Company Number: GB-TEVA-2021-GB-1878366

PATIENT
  Age: 61 Year
  Sex: Female
  Weight: 73.02 kg

DRUGS (2)
  1. LOSARTAN POTASSIUM. [Concomitant]
     Active Substance: LOSARTAN POTASSIUM
     Dosage: 100 MILLIGRAM DAILY; AT NIGHT
  2. BISOPROLOL FUMARATE. [Suspect]
     Active Substance: BISOPROLOL FUMARATE
     Indication: HYPERTENSION
     Route: 048
     Dates: start: 20190101, end: 20210201

REACTIONS (10)
  - Hypoaesthesia [Recovering/Resolving]
  - Productive cough [Recovering/Resolving]
  - Dry skin [Not Recovered/Not Resolved]
  - Dyspnoea [Recovering/Resolving]
  - Rhinorrhoea [Recovering/Resolving]
  - Nightmare [Recovering/Resolving]
  - Fatigue [Recovering/Resolving]
  - Skin discolouration [Recovering/Resolving]
  - Wheezing [Recovering/Resolving]
  - Chest discomfort [Recovering/Resolving]

NARRATIVE: CASE EVENT DATE: 20210116
